FAERS Safety Report 9738501 (Version 2)
Quarter: 2013Q4

REPORT INFORMATION
  Report Type: Spontaneous
  Country: DE (occurrence: DE)
  Receive Date: 20131208
  Receipt Date: 20131208
  Transmission Date: 20140711
  Serious: Yes (Other)
  Sender: FDA-Public Use
  Company Number: DE-ROCHE-1290472

PATIENT
  Age: 52 Year
  Sex: Female
  Weight: 99 kg

DRUGS (3)
  1. ROACTEMRA [Suspect]
     Indication: RHEUMATOID ARTHRITIS
     Route: 042
     Dates: start: 20121010
  2. METHOTREXATE [Concomitant]
     Indication: RHEUMATOID ARTHRITIS
     Route: 048
     Dates: start: 201112
  3. PREDNISONE [Concomitant]
     Route: 048
     Dates: start: 201007

REACTIONS (2)
  - Skin fissures [Not Recovered/Not Resolved]
  - Oedema peripheral [Not Recovered/Not Resolved]
